FAERS Safety Report 8065895-1 (Version None)
Quarter: 2011Q4

REPORT INFORMATION
  Report Type: 
  Country: None (occurrence: None)
  Receive Date: 20111221
  Receipt Date: 20111027
  Transmission Date: 20120403
  Serious: Yes (Other)
  Sender: FDA-Public Use
  Company Number: PHEH2011US05741

PATIENT
  Age: 2 Year
  Sex: Female

DRUGS (1)
  1. EXJADE [Suspect]
     Dosage: 250 MG, QD, ORAL
     Route: 048

REACTIONS (1)
  - HEPATIC ENZYME INCREASED [None]
